FAERS Safety Report 14493106 (Version 1)
Quarter: 2018Q1

REPORT INFORMATION
  Report Type: Spontaneous
  Country: US (occurrence: US)
  Receive Date: 20180205
  Receipt Date: 20180205
  Transmission Date: 20180509
  Serious: Yes (Death, Life-Threatening, Hospitalization, Disabling)
  Sender: FDA-Public Use
  Company Number: None

PATIENT
  Age: 80 Year
  Sex: Male
  Weight: 94.4 kg

DRUGS (1)
  1. COUMADIN [Suspect]
     Active Substance: WARFARIN SODIUM

REACTIONS (7)
  - Cerebrovascular accident [None]
  - Anticoagulation drug level above therapeutic [None]
  - Haemorrhage intracranial [None]
  - Generalised tonic-clonic seizure [None]
  - Acute respiratory failure [None]
  - Vomiting [None]
  - Mental status changes [None]

NARRATIVE: CASE EVENT DATE: 20180121
